FAERS Safety Report 6508143-3 (Version None)
Quarter: 2009Q4

REPORT INFORMATION
  Report Type: 
  Country: None (occurrence: None)
  Receive Date: 20091221
  Receipt Date: 20091214
  Transmission Date: 20100525
  Serious: Yes (Other)
  Sender: FDA-Public Use
  Company Number: GB-PFIZER INC-2009186473

PATIENT
  Age: 54 Year

DRUGS (1)
  1. CHAMPIX [Suspect]
     Dosage: UNKNOWN
     Route: 048
     Dates: start: 20090212, end: 20090304

REACTIONS (5)
  - DYSPEPSIA [None]
  - HOT FLUSH [None]
  - PARANOIA [None]
  - RASH [None]
  - SWOLLEN TONGUE [None]
